FAERS Safety Report 13247523 (Version 2)
Quarter: 2017Q1

REPORT INFORMATION
  Report Type: Spontaneous
  Country: US (occurrence: US)
  Receive Date: 20170217
  Receipt Date: 20170223
  Transmission Date: 20170428
  Serious: Yes (Other)
  Sender: FDA-Public Use
  Company Number: US-ELI_LILLY_AND_COMPANY-US201702006242

PATIENT
  Age: 73 Year
  Sex: Female

DRUGS (36)
  1. HUMALOG [Suspect]
     Active Substance: INSULIN LISPRO
     Dosage: 5 U, UNKNOWN
     Route: 065
     Dates: start: 20170203
  2. NITRO                              /00003201/ [Concomitant]
     Active Substance: NITROGLYCERIN
     Indication: DIZZINESS
     Dosage: UNK, PRN
  3. HUMALOG [Suspect]
     Active Substance: INSULIN LISPRO
     Dosage: 7 U, BID
     Route: 065
     Dates: start: 20170208
  4. CLOPIDOGREL [Concomitant]
     Active Substance: CLOPIDOGREL BISULFATE
  5. CALCIUM [Concomitant]
     Active Substance: CALCIUM
  6. HUMALOG [Suspect]
     Active Substance: INSULIN LISPRO
     Dosage: 5 U, UNKNOWN
     Route: 065
     Dates: start: 20170204
  7. LANTUS [Concomitant]
     Active Substance: INSULIN GLARGINE
  8. OMEPRAZOLE. [Concomitant]
     Active Substance: OMEPRAZOLE
  9. FUROSEMIDE. [Concomitant]
     Active Substance: FUROSEMIDE
  10. ALLOPURINOL. [Concomitant]
     Active Substance: ALLOPURINOL
  11. IRON [Concomitant]
     Active Substance: IRON
  12. NOVOLOG [Concomitant]
     Active Substance: INSULIN ASPART
  13. HUMALOG [Suspect]
     Active Substance: INSULIN LISPRO
     Dosage: 5 U, UNKNOWN
     Route: 065
     Dates: start: 20170202
  14. HUMALOG [Suspect]
     Active Substance: INSULIN LISPRO
     Dosage: 4 U, UNKNOWN
     Route: 065
     Dates: start: 20170204
  15. HUMALOG [Suspect]
     Active Substance: INSULIN LISPRO
     Dosage: 8 U, UNKNOWN
     Route: 065
     Dates: start: 20170205
  16. LOSARTIN [Concomitant]
     Active Substance: LOSARTAN
  17. LEVOTHYROXINE. [Concomitant]
     Active Substance: LEVOTHYROXINE
  18. METOPROLOL. [Concomitant]
     Active Substance: METOPROLOL
  19. FISH OIL [Concomitant]
     Active Substance: FISH OIL
  20. VITAMIN D3 [Concomitant]
     Active Substance: CHOLECALCIFEROL
  21. HUMALOG [Suspect]
     Active Substance: INSULIN LISPRO
     Indication: TYPE 2 DIABETES MELLITUS
     Dosage: UNK, TID
     Route: 065
     Dates: start: 1997
  22. HUMALOG [Suspect]
     Active Substance: INSULIN LISPRO
     Dosage: UNK, PRN
     Route: 065
     Dates: start: 1997
  23. HUMALOG [Suspect]
     Active Substance: INSULIN LISPRO
     Dosage: UNK UNK, UNKNOWN
     Route: 065
     Dates: start: 20170205
  24. HUMALOG [Suspect]
     Active Substance: INSULIN LISPRO
     Dosage: 3 U, UNKNOWN
     Route: 065
     Dates: start: 20170208
  25. HUMALOG [Suspect]
     Active Substance: INSULIN LISPRO
     Dosage: 7 U, BID
     Route: 065
     Dates: start: 20170213
  26. DOXAZOSIN [Concomitant]
     Active Substance: DOXAZOSIN\DOXAZOSIN MESYLATE
  27. ISOSORBIDE. [Concomitant]
     Active Substance: ISOSORBIDE
  28. HUMALOG [Suspect]
     Active Substance: INSULIN LISPRO
     Dosage: UNK, TID
     Route: 065
     Dates: start: 201702
  29. HUMALOG [Suspect]
     Active Substance: INSULIN LISPRO
     Dosage: UNK, PRN
     Route: 065
     Dates: start: 201702
  30. VERAPAMIL [Concomitant]
     Active Substance: VERAPAMIL HYDROCHLORIDE
  31. MECLIZINE [Concomitant]
     Active Substance: MECLIZINE HYDROCHLORIDE
     Indication: DIZZINESS
     Dosage: UNK, PRN
  32. HUMALOG [Suspect]
     Active Substance: INSULIN LISPRO
     Dosage: 6 U, UNKNOWN
     Route: 065
     Dates: start: 20170204
  33. HUMALOG [Suspect]
     Active Substance: INSULIN LISPRO
     Dosage: 8 U, TID
     Route: 065
     Dates: start: 20170206
  34. LIPITOR [Concomitant]
     Active Substance: ATORVASTATIN CALCIUM
  35. BABY ASPIRIN [Concomitant]
     Active Substance: ASPIRIN
  36. FOLIC ACID. [Concomitant]
     Active Substance: FOLIC ACID

REACTIONS (11)
  - Amnesia [Unknown]
  - Blood glucose decreased [Recovered/Resolved]
  - Drug ineffective [Unknown]
  - Incorrect drug administration duration [Unknown]
  - Goitre [Unknown]
  - Blood glucose increased [Recovered/Resolved]
  - Dementia [Unknown]
  - Cardiac disorder [Unknown]
  - Respiratory disorder [Unknown]
  - Incorrect product storage [Unknown]
  - Chronic kidney disease [Unknown]

NARRATIVE: CASE EVENT DATE: 201702
